FAERS Safety Report 23574805 (Version 1)
Quarter: 2024Q1

REPORT INFORMATION
  Report Type: Spontaneous
  Country: KR (occurrence: KR)
  Receive Date: 20240228
  Receipt Date: 20240228
  Transmission Date: 20240410
  Serious: Yes (Hospitalization, Other)
  Sender: FDA-Public Use
  Company Number: KR-SA-SAC20240227000102

PATIENT
  Age: 76 Year
  Sex: Female
  Weight: 52.4 kg

DRUGS (38)
  1. ZALTRAP [Suspect]
     Active Substance: ZIV-AFLIBERCEPT
     Indication: Rectal cancer
     Dosage: 4 MG/KG
     Route: 065
     Dates: start: 20221021
  2. IRINOTECAN HYDROCHLORIDE [Suspect]
     Active Substance: IRINOTECAN HYDROCHLORIDE
     Indication: Rectal cancer
     Dosage: 240 MG/M2
     Dates: start: 20221021
  3. LEUCOVORIN CALCIUM [Suspect]
     Active Substance: LEUCOVORIN CALCIUM
     Indication: Rectal cancer
     Dosage: 90 MG/M2
     Dates: start: 20221021
  4. FLUOROURACIL [Suspect]
     Active Substance: FLUOROURACIL
     Indication: Rectal cancer
     Dosage: 1440 MG/M2, Q3W
     Dates: start: 20221021
  5. FLUOROURACIL [Suspect]
     Active Substance: FLUOROURACIL
     Dosage: 240 MG/M2
     Dates: start: 20221021
  6. PIPERACILLIN AND TAZOBACTAM [Concomitant]
     Active Substance: PIPERACILLIN SODIUM\TAZOBACTAM SODIUM
     Indication: Antibiotic therapy
     Dosage: 4.5 G
     Dates: start: 20230411, end: 20230428
  7. TRAMADOL HYDROCHLORIDE [Concomitant]
     Active Substance: TRAMADOL HYDROCHLORIDE
     Indication: Pain
     Dosage: 50 MG
     Dates: start: 20230413, end: 20230413
  8. TRAMADOL HYDROCHLORIDE [Concomitant]
     Active Substance: TRAMADOL HYDROCHLORIDE
     Dosage: 100 MG, Q6H
     Dates: start: 20230420
  9. MORPHINE SULFATE [Concomitant]
     Active Substance: MORPHINE SULFATE
     Indication: Pain
     Dosage: 3 MG
     Dates: start: 20230410, end: 20230411
  10. NOREPINEPHRINE BITARTRATE [Concomitant]
     Active Substance: NOREPINEPHRINE BITARTRATE
     Indication: Hypotension
     Dosage: 40 MG
     Dates: start: 20230411, end: 20230412
  11. KETOROLAC TROMETHAMINE [Concomitant]
     Active Substance: KETOROLAC TROMETHAMINE
     Indication: Pain
     Dosage: 30 MG
     Dates: start: 20230411, end: 20230411
  12. HYDROCORTISONE SODIUM SUCCINATE [Concomitant]
     Active Substance: HYDROCORTISONE SODIUM SUCCINATE
     Indication: Infection
     Dosage: 50 MG
     Dates: start: 20230411, end: 20230412
  13. MEROPENEM [Concomitant]
     Active Substance: MEROPENEM
     Indication: Antibiotic therapy
     Dosage: 1 G
     Dates: start: 20230411, end: 20230414
  14. TEICOPLANIN [Concomitant]
     Active Substance: TEICOPLANIN
     Indication: Antibiotic therapy
     Dosage: 300 MG
     Dates: start: 20230411, end: 20230411
  15. TEICOPLANIN [Concomitant]
     Active Substance: TEICOPLANIN
     Indication: Prophylaxis
     Dosage: 300 MG, QD
     Dates: start: 20230412, end: 20230414
  16. ACETAMINOPHEN [Concomitant]
     Active Substance: ACETAMINOPHEN
     Indication: Pain
     Dosage: 1 G
     Dates: start: 20230411, end: 20230411
  17. FENTANYL [Concomitant]
     Active Substance: FENTANYL\FENTANYL CITRATE
     Indication: Pain
     Dosage: 500 UG
     Dates: start: 20230412, end: 20230414
  18. PROPOFOL [Concomitant]
     Active Substance: PROPOFOL
     Indication: Sedative therapy
     Dosage: 1000 MG, QD
     Dates: start: 20230411, end: 20230412
  19. ACETYLCYSTEINE [Concomitant]
     Active Substance: ACETYLCYSTEINE
     Indication: Prophylaxis
     Dosage: 600 MG, Q8H
     Dates: start: 20230411, end: 20230417
  20. ACETYLCYSTEINE [Concomitant]
     Active Substance: ACETYLCYSTEINE
     Dosage: 600 MG, Q6H
     Dates: start: 20230411, end: 20230417
  21. REMIFENTANIL HYDROCHLORIDE [Concomitant]
     Active Substance: REMIFENTANIL HYDROCHLORIDE
     Indication: Sedative therapy
     Dosage: 1 MG, QD
     Dates: start: 20230411, end: 20230412
  22. ACECLOFENAC [Concomitant]
     Active Substance: ACECLOFENAC
     Indication: Pain
     Dosage: 100 MG, Q12H
     Dates: start: 20230417
  23. NICARDIPINE HYDROCHLORIDE [Concomitant]
     Active Substance: NICARDIPINE HYDROCHLORIDE
     Indication: Blood pressure abnormal
     Dosage: 3 MG
     Dates: start: 20230419, end: 20230419
  24. AMLODIPINE BESYLATE [Concomitant]
     Active Substance: AMLODIPINE BESYLATE
     Indication: Hypertension
     Dosage: 10 MG, QD
     Dates: start: 20230420
  25. LACTULOSE [Concomitant]
     Active Substance: LACTULOSE
     Indication: Constipation prophylaxis
     Dosage: 15 ML, Q8H
     Dates: start: 20230421, end: 20230424
  26. IBUPROFEN [Concomitant]
     Active Substance: IBUPROFEN
     Indication: Pain
     Dosage: 400 MG, QD
     Dates: start: 20230421, end: 20230423
  27. SPIRONOLACTONE [Concomitant]
     Active Substance: SPIRONOLACTONE
     Indication: Fluid imbalance
     Dosage: 25 MG, Q12H
     Dates: start: 20230422
  28. FUROSEMIDE [Concomitant]
     Active Substance: FUROSEMIDE
     Indication: Fluid imbalance
     Dosage: 10 MG
     Dates: start: 20230413, end: 20230421
  29. FUROSEMIDE [Concomitant]
     Active Substance: FUROSEMIDE
     Dosage: 20 MG, Q12H
     Dates: start: 20230422
  30. MAGNESIUM OXIDE [Concomitant]
     Active Substance: MAGNESIUM OXIDE
     Indication: Constipation prophylaxis
     Dosage: 250 MG, Q8H
     Dates: start: 20230421, end: 20230424
  31. METOCLOPRAMIDE [Concomitant]
     Active Substance: METOCLOPRAMIDE
     Indication: Gastritis prophylaxis
     Dosage: 10 MG
     Dates: start: 20230420, end: 20230420
  32. RAMOSETRON HYDROCHLORIDE [Concomitant]
     Active Substance: RAMOSETRON HYDROCHLORIDE
     Indication: Prophylaxis of nausea and vomiting
     Dosage: 0.3 MG
     Dates: start: 20230412, end: 20230423
  33. ESOMEPRAZOLE SODIUM [Concomitant]
     Active Substance: ESOMEPRAZOLE SODIUM
     Indication: Gastritis prophylaxis
     Dosage: 40 MG, QD
     Dates: start: 20230411, end: 20230414
  34. KETOPROFEN [Concomitant]
     Active Substance: KETOPROFEN
     Indication: Pain
     Dosage: 1 DF
     Dates: start: 20230412, end: 20230412
  35. CHLORHEXIDINE GLUCONATE [Concomitant]
     Active Substance: CHLORHEXIDINE GLUCONATE
     Indication: Mucosal inflammation
     Dosage: 100 ML, Q8H
     Dates: start: 20230411, end: 20230413
  36. SCOPOLAMINE [Concomitant]
     Active Substance: SCOPOLAMINE
     Indication: Prophylaxis
     Dosage: 20 MG, QD
     Dates: start: 20230413, end: 20230413
  37. CHROMIC CHLORIDE;COPPER SULFATE;MAGNESIUM SULFATE;ZINC SULFATE [Concomitant]
     Indication: Nutritional supplementation
     Dosage: 0.5 ML, QD
     Dates: start: 20230412, end: 20230427
  38. ACETAMINOPHEN\CODEINE\IBUPROFEN [Concomitant]
     Active Substance: ACETAMINOPHEN\CODEINE\IBUPROFEN
     Indication: Pain
     Dosage: UNK UNK, Q8H
     Dates: start: 20230415, end: 20230418

REACTIONS (3)
  - Colitis ischaemic [Recovered/Resolved]
  - Abdominal pain [Recovered/Resolved]
  - Vomiting [Recovered/Resolved]

NARRATIVE: CASE EVENT DATE: 20230410
